FAERS Safety Report 9394415 (Version 2)
Quarter: 2013Q3

REPORT INFORMATION
  Report Type: Report from Study
  Country: US (occurrence: US)
  Receive Date: 20130711
  Receipt Date: 20130926
  Transmission Date: 20140515
  Serious: Yes (Hospitalization)
  Sender: FDA-Public Use
  Company Number: US-ALEXION-A201301555

PATIENT
  Age: 37 Year
  Sex: Female

DRUGS (1)
  1. SOLIRIS [Suspect]
     Indication: PAROXYSMAL NOCTURNAL HAEMOGLOBINURIA
     Dosage: UNK
     Route: 042

REACTIONS (6)
  - Complicated migraine [Unknown]
  - Blood lactate dehydrogenase increased [Unknown]
  - Migraine [Not Recovered/Not Resolved]
  - Laryngitis [Unknown]
  - Fatigue [Unknown]
  - Nasopharyngitis [Unknown]
